FAERS Safety Report 20223849 (Version 1)
Quarter: 2021Q4

REPORT INFORMATION
  Report Type: Spontaneous
  Country: US (occurrence: None)
  Receive Date: 20211223
  Receipt Date: 20211223
  Transmission Date: 20220303
  Serious: No
  Sender: FDA-Public Use
  Company Number: None

PATIENT
  Sex: Female

DRUGS (1)
  1. NORDITROPIN [Suspect]
     Active Substance: SOMATROPIN
     Dosage: OTHER QUANTITY : 5 MG/1.5ML;?FREQUENCY : DAILY;?
     Route: 058
     Dates: start: 20211019

REACTIONS (1)
  - Hospitalisation [None]
